FAERS Safety Report 10152018 (Version 3)
Quarter: 2014Q3

REPORT INFORMATION
  Report Type: Spontaneous
  Country: ZA (occurrence: None)
  Receive Date: 20140501
  Receipt Date: 20140822
  Transmission Date: 20150326
  Serious: Yes (Hospitalization)
  Sender: FDA-Public Use
  Company Number: 2305457

PATIENT
  Age: 61 Year
  Sex: Female

DRUGS (10)
  1. PHENYLEPHRINE [Concomitant]
     Active Substance: PHENYLEPHRINE\PHENYLEPHRINE HYDROCHLORIDE
  2. VECURONIUM [Suspect]
     Active Substance: VECURONIUM BROMIDE
     Indication: INDUCTION OF ANAESTHESIA
  3. ADRENALINE /00003901/ [Suspect]
     Active Substance: EPINEPHRINE
     Indication: HYPOTENSION
  4. ADRENALINE /00003901/ [Suspect]
     Active Substance: EPINEPHRINE
     Indication: BRADYCARDIA
  5. SEVOFLURANE. [Concomitant]
     Active Substance: SEVOFLURANE
  6. PROPOFOL. [Suspect]
     Active Substance: PROPOFOL
     Indication: INDUCTION OF ANAESTHESIA
  7. ANTIBIOTIC /00011701/ [Concomitant]
     Active Substance: UNSPECIFIED INGREDIENT
  8. FENTANYL. [Suspect]
     Active Substance: FENTANYL
     Indication: INDUCTION OF ANAESTHESIA
  9. BUPIVACAINE [Concomitant]
     Active Substance: BUPIVACAINE
  10. EPHEDRINE SULFATE. [Suspect]
     Active Substance: EPHEDRINE SULFATE
     Indication: HYPOTENSION
     Route: 040

REACTIONS (9)
  - Arteriospasm coronary [None]
  - Procedural complication [None]
  - Heart rate decreased [None]
  - Myocardial infarction [None]
  - Blood magnesium decreased [None]
  - Ventricular tachycardia [None]
  - Hypotension [None]
  - Drug resistance [None]
  - Myocardial ischaemia [None]
